FAERS Safety Report 6049436-6 (Version None)
Quarter: 2009Q1

REPORT INFORMATION
  Report Type: 
  Country: None (occurrence: None)
  Receive Date: 20090123
  Receipt Date: 20090115
  Transmission Date: 20090719
  Serious: Yes (Hospitalization)
  Sender: FDA-Public Use
  Company Number: AU-MERCK-0808AUS00055

PATIENT
  Age: 66 Year
  Sex: Female

DRUGS (12)
  1. APREPITANT [Suspect]
     Indication: PROPHYLAXIS OF NAUSEA AND VOMITING
     Route: 065
     Dates: start: 20080805, end: 20080805
  2. APREPITANT [Suspect]
     Route: 065
     Dates: start: 20080101
  3. APREPITANT [Suspect]
     Route: 065
     Dates: start: 20080101
  4. ATENOLOL [Concomitant]
     Route: 065
  5. PERINDOPRIL [Concomitant]
     Route: 065
  6. METFORMIN [Concomitant]
     Route: 065
  7. EZETIMIBE AND SIMVASTATIN [Concomitant]
     Route: 065
  8. ASPIRIN [Concomitant]
     Route: 065
  9. METOCLOPRAMIDE [Concomitant]
     Route: 065
     Dates: start: 20080101
  10. GRANISETRON HYDROCHLORIDE [Concomitant]
     Route: 065
     Dates: start: 20080101, end: 20080101
  11. GRANISETRON HYDROCHLORIDE [Concomitant]
     Route: 065
     Dates: start: 20080101, end: 20080101
  12. GRANISETRON HYDROCHLORIDE [Concomitant]
     Route: 042
     Dates: start: 20080805, end: 20080805

REACTIONS (3)
  - FLUSHING [None]
  - MUSCLE TWITCHING [None]
  - SWOLLEN TONGUE [None]
